FAERS Safety Report 22061815 (Version 1)
Quarter: 2023Q1

REPORT INFORMATION
  Report Type: Spontaneous
  Country: US (occurrence: US)
  Receive Date: 20230304
  Receipt Date: 20230304
  Transmission Date: 20230417
  Serious: Yes (Other)
  Sender: FDA-Public Use
  Company Number: US-002147023-NVSC2023US049536

PATIENT

DRUGS (3)
  1. LUTATHERA [Interacting]
     Active Substance: LUTETIUM OXODOTREOTIDE LU-177
     Indication: Gastroenteropancreatic neuroendocrine tumour disease
     Dosage: UNK (200 MILICURRIES)
     Route: 065
  2. LUTATHERA [Interacting]
     Active Substance: LUTETIUM OXODOTREOTIDE LU-177
     Dosage: UNK (200 MILICURRIES)
     Route: 065
  3. LUTATHERA [Interacting]
     Active Substance: LUTETIUM OXODOTREOTIDE LU-177
     Dosage: UNK (200 MILICURRIES)
     Route: 065

REACTIONS (2)
  - Malignant neoplasm progression [Unknown]
  - Gastroenteropancreatic neuroendocrine tumour disease [Unknown]
